FAERS Safety Report 18946217 (Version 1)
Quarter: 2021Q1

REPORT INFORMATION
  Report Type: Spontaneous
  Country: US (occurrence: US)
  Receive Date: 20210226
  Receipt Date: 20210226
  Transmission Date: 20210420
  Serious: No
  Sender: FDA-Public Use
  Company Number: US-AMNEAL PHARMACEUTICALS-2020-AMRX-01921

PATIENT
  Sex: Male
  Weight: 86 kg

DRUGS (1)
  1. METFORMIN HYDROCHLORIDE. [Suspect]
     Active Substance: METFORMIN HYDROCHLORIDE
     Indication: GLUCOSE TOLERANCE IMPAIRED
     Dosage: 2 TABLETS, BID
     Route: 048
     Dates: end: 2020

REACTIONS (7)
  - Nausea [Unknown]
  - Diarrhoea [Unknown]
  - Illness [Unknown]
  - Vomiting [Unknown]
  - Headache [Unknown]
  - Weight decreased [Unknown]
  - Feeding disorder [Unknown]
